FAERS Safety Report 9175814 (Version 1)
Quarter: 2013Q1

REPORT INFORMATION
  Report Type: Spontaneous
  Country: DK (occurrence: DK)
  Receive Date: 20130320
  Receipt Date: 20130320
  Transmission Date: 20140127
  Serious: Yes (Hospitalization)
  Sender: FDA-Public Use
  Company Number: DK-FRI-1000043574

PATIENT
  Age: 37 Year
  Sex: Female
  Weight: 44 kg

DRUGS (1)
  1. CITALOPRAM [Suspect]
     Indication: PANIC DISORDER
     Dosage: 40 MG
     Dates: start: 20121008

REACTIONS (11)
  - Epistaxis [Recovered/Resolved]
  - Anxiety [Unknown]
  - Dry mouth [Unknown]
  - Night sweats [Not Recovered/Not Resolved]
  - Abnormal dreams [Unknown]
  - Sleep disorder [Unknown]
  - Derealisation [Unknown]
  - Restlessness [Unknown]
  - Paraesthesia [Not Recovered/Not Resolved]
  - Sensation of foreign body [Unknown]
  - Neck pain [Unknown]
